FAERS Safety Report 21668400 (Version 1)
Quarter: 2022Q4

REPORT INFORMATION
  Report Type: Spontaneous
  Country: US (occurrence: None)
  Receive Date: 20221201
  Receipt Date: 20221201
  Transmission Date: 20230112
  Serious: Yes (Disabling)
  Sender: FDA-Public Use
  Company Number: None

PATIENT
  Age: 31 Year
  Sex: Female
  Weight: 60 kg

DRUGS (1)
  1. KYLEENA [Suspect]
     Active Substance: LEVONORGESTREL

REACTIONS (4)
  - Urinary tract infection [None]
  - Vulvovaginal candidiasis [None]
  - Device issue [None]
  - Bacterial vaginosis [None]

NARRATIVE: CASE EVENT DATE: 20211007
